FAERS Safety Report 18729359 (Version 1)
Quarter: 2021Q1

REPORT INFORMATION
  Report Type: Report from Study
  Country: GB (occurrence: GB)
  Receive Date: 20210112
  Receipt Date: 20210112
  Transmission Date: 20210419
  Serious: Yes (Hospitalization, Other)
  Sender: FDA-Public Use
  Company Number: GB-TAKEDA-GB201506811

PATIENT
  Age: 7 Year
  Sex: Male

DRUGS (15)
  1. IDURSULFASE [Suspect]
     Active Substance: IDURSULFASE
     Dosage: 0.34 MILLIGRAM/KILOGRAM, 1/WEEK
     Route: 042
     Dates: start: 20100415
  2. IDURSULFASE [Suspect]
     Active Substance: IDURSULFASE
     Dosage: 0.55 MILLIGRAM/KILOGRAM, 1/WEEK
     Route: 042
     Dates: start: 20110815
  3. RANITIDINE. [Concomitant]
     Active Substance: RANITIDINE
     Indication: PRODUCT USED FOR UNKNOWN INDICATION
     Dosage: UNK
     Route: 065
     Dates: start: 20131212
  4. IDURSULFASE [Suspect]
     Active Substance: IDURSULFASE
     Dosage: 0.51 MILLIGRAM/KILOGRAM, 1/WEEK
     Route: 042
     Dates: start: 20110510
  5. EMLA [Concomitant]
     Active Substance: LIDOCAINE\PRILOCAINE
     Indication: PRODUCT USED FOR UNKNOWN INDICATION
     Dosage: UNK
     Route: 065
     Dates: start: 20131212
  6. IDURSULFASE [Suspect]
     Active Substance: IDURSULFASE
     Dosage: 0.63 MILLIGRAM/KILOGRAM, 1/WEEK
     Route: 042
     Dates: start: 20100602
  7. IDURSULFASE [Suspect]
     Active Substance: IDURSULFASE
     Dosage: 0.60 MILLIGRAM/KILOGRAM, 1/WEEK
     Route: 042
     Dates: start: 20130708
  8. HYDROXYZINE [Concomitant]
     Active Substance: HYDROXYZINE HYDROCHLORIDE
     Indication: PREMEDICATION
     Dosage: UNK
     Route: 048
     Dates: start: 20090421
  9. IDURSULFASE [Suspect]
     Active Substance: IDURSULFASE
     Dosage: 0.47 MILLIGRAM/KILOGRAM, 1/WEEK
     Route: 042
     Dates: start: 20120530
  10. ACETAMINOPHEN. [Concomitant]
     Active Substance: ACETAMINOPHEN
     Indication: PREMEDICATION
     Dosage: UNK
     Route: 048
     Dates: start: 20090421
  11. IDURSULFASE [Suspect]
     Active Substance: IDURSULFASE
     Dosage: 0.68 MILLIGRAM/KILOGRAM, 1/WEEK
     Route: 042
     Dates: start: 20100510
  12. IDURSULFASE [Suspect]
     Active Substance: IDURSULFASE
     Indication: MUCOPOLYSACCHARIDOSIS II
     Dosage: 0.5 MG/KG, 1X/WEEK
     Route: 041
     Dates: start: 20090421
  13. MELATONIN [Concomitant]
     Active Substance: MELATONIN
     Indication: SLEEP DISORDER
     Dosage: UNK
     Route: 048
     Dates: start: 201009
  14. IBUPROFEN. [Concomitant]
     Active Substance: IBUPROFEN
     Indication: PRODUCT USED FOR UNKNOWN INDICATION
     Dosage: UNK
     Route: 065
     Dates: start: 20131212
  15. CHLORPHENAMINE [Concomitant]
     Active Substance: CHLORPHENIRAMINE MALEATE
     Indication: PRODUCT USED FOR UNKNOWN INDICATION
     Dosage: UNK
     Route: 065
     Dates: start: 20131212

REACTIONS (2)
  - Cholesteatoma [Recovered/Resolved]
  - Infusion site swelling [Recovered/Resolved]

NARRATIVE: CASE EVENT DATE: 2014
